FAERS Safety Report 6511235-6 (Version None)
Quarter: 2009Q4

REPORT INFORMATION
  Report Type: 
  Country: None (occurrence: None)
  Receive Date: 20091222
  Receipt Date: 20090317
  Transmission Date: 20100525
  Serious: No
  Sender: FDA-Public Use
  Company Number: US-ASTRAZENECA-2009UW06813

PATIENT
  Age: 74 Year
  Sex: Female
  Weight: 59.4 kg

DRUGS (6)
  1. CRESTOR [Suspect]
     Indication: BLOOD CHOLESTEROL INCREASED
     Route: 048
  2. PROTONIX [Concomitant]
     Route: 048
  3. NABUMETONE [Concomitant]
  4. COENZYME Q10 [Concomitant]
  5. CLARITIN-D [Concomitant]
  6. ALLEGRA [Concomitant]

REACTIONS (2)
  - DYSGEUSIA [None]
  - NAUSEA [None]
